FAERS Safety Report 15090145 (Version 2)
Quarter: 2021Q2

REPORT INFORMATION
  Report Type: Other
  Country: PT (occurrence: PT)
  Receive Date: 20180629
  Receipt Date: 20210507
  Transmission Date: 20210716
  Serious: Yes (Hospitalization)
  Sender: FDA-Public Use
  Company Number: PT-ROCHE-2033046

PATIENT
  Age: 80 Year
  Sex: Female

DRUGS (15)
  1. FUROSEMIDE. [Concomitant]
     Active Substance: FUROSEMIDE
     Indication: HUMERUS FRACTURE
     Dosage: ONGOING = NOT CHECKED
     Dates: start: 20171115, end: 20171123
  2. CAPTOPRIL. [Concomitant]
     Active Substance: CAPTOPRIL
     Indication: HUMERUS FRACTURE
     Dosage: ONGOING = NOT CHECKED
     Dates: start: 20170615, end: 20171123
  3. SODIUM CHLORIDE. [Concomitant]
     Active Substance: SODIUM CHLORIDE
     Indication: HUMERUS FRACTURE
     Dosage: ONGOING = NOT CHECKED
     Dates: start: 20171115, end: 20171123
  4. ANASTROZOLE. [Suspect]
     Active Substance: ANASTROZOLE
     Indication: BREAST CANCER
     Route: 048
     Dates: start: 20170221
  5. SIMVASTATIN. [Concomitant]
     Active Substance: SIMVASTATIN
  6. OLSAR PLUS [Concomitant]
     Active Substance: HYDROCHLOROTHIAZIDE\OLMESARTAN MEDOXOMIL
  7. TRAMADOL. [Concomitant]
     Active Substance: TRAMADOL
     Dosage: ONGOING = NOT CHECKED
     Dates: start: 20171115, end: 20171123
  8. LASIX [Concomitant]
     Active Substance: FUROSEMIDE
  9. CEFAZOLINE [Concomitant]
     Active Substance: CEFAZOLIN SODIUM
     Indication: HUMERUS FRACTURE
     Dosage: ONGOING = NOT CHECKED
     Dates: start: 20171115, end: 20171123
  10. TRASTUZUMAB. [Suspect]
     Active Substance: TRASTUZUMAB
     Indication: BREAST CANCER
     Route: 058
     Dates: start: 20170428
  11. TRAMADOL. [Concomitant]
     Active Substance: TRAMADOL
     Indication: HUMERUS FRACTURE
     Dosage: ONGOING = CHECKED
     Dates: start: 20171104
  12. METOCLOPRAMIDE. [Concomitant]
     Active Substance: METOCLOPRAMIDE
     Indication: HUMERUS FRACTURE
     Dosage: ONGOING = NOT CHECKED
     Dates: start: 20171115, end: 20171123
  13. PARACETAMOL [Concomitant]
     Active Substance: ACETAMINOPHEN
     Dosage: ONGOING = NOT CHECKED
     Dates: start: 20171104, end: 20171106
  14. DICLOFENAC AL RETARD [Concomitant]
     Dosage: ONGOING = CHECKED
     Dates: start: 20171104
  15. METFORMIN [Concomitant]
     Active Substance: METFORMIN HYDROCHLORIDE

REACTIONS (1)
  - Humerus fracture [Recovered/Resolved]

NARRATIVE: CASE EVENT DATE: 20171109
